FAERS Safety Report 17014091 (Version 6)
Quarter: 2019Q4

REPORT INFORMATION
  Report Type: Report from Study
  Country: None (occurrence: CH)
  Receive Date: 20191111
  Receipt Date: 20191204
  Transmission Date: 20200122
  Serious: Yes (Hospitalization)
  Sender: FDA-Public Use
  Company Number: CH-ABBVIE-19K-151-2987671-00

PATIENT
  Age: 75 Year
  Sex: Female

DRUGS (5)
  1. STALEVO [Concomitant]
     Active Substance: CARBIDOPA\ENTACAPONE\LEVODOPA
     Indication: PRODUCT USED FOR UNKNOWN INDICATION
     Route: 048
     Dates: start: 20191120
  2. DUODOPA [Suspect]
     Active Substance: CARBIDOPA\LEVODOPA
     Dosage: MD 5ML, CD 2.4ML/H, CONTINUOUS RATE-NIGHT 1.6ML/H, ED 1ML?24 TH THERAPY
     Route: 050
     Dates: start: 20191028, end: 20191104
  3. DUODOPA [Suspect]
     Active Substance: CARBIDOPA\LEVODOPA
     Indication: PARKINSON^S DISEASE
     Route: 050
     Dates: start: 20191014, end: 20191023
  4. DUODOPA [Suspect]
     Active Substance: CARBIDOPA\LEVODOPA
     Dosage: MD 7ML, CD 2.3ML/H, ED 1ML?16 TH THERAPY
     Route: 050
     Dates: start: 20191023, end: 20191028
  5. DUODOPA [Suspect]
     Active Substance: CARBIDOPA\LEVODOPA
     Dosage: MD 2ML, CONTI RATE-DAY 2.4ML/H, C.D RATE NIGHT1.2ML/H, E.D1ML,1 CASSETTE PER DAY
     Route: 050
     Dates: start: 20191104, end: 20191120

REACTIONS (11)
  - Hallucination [Not Recovered/Not Resolved]
  - Infection [Unknown]
  - Urinary tract infection [Not Recovered/Not Resolved]
  - On and off phenomenon [Not Recovered/Not Resolved]
  - Fluid intake reduced [Unknown]
  - Hypernatraemia [Recovered/Resolved]
  - Confusional state [Unknown]
  - Incoherent [Unknown]
  - Muscle rigidity [Not Recovered/Not Resolved]
  - Psychomotor hyperactivity [Unknown]
  - Dyskinesia [Not Recovered/Not Resolved]

NARRATIVE: CASE EVENT DATE: 2019
